FAERS Safety Report 16483627 (Version 1)
Quarter: 2019Q2

REPORT INFORMATION
  Report Type: Spontaneous
  Country: FR (occurrence: FR)
  Receive Date: 20190627
  Receipt Date: 20190627
  Transmission Date: 20190711
  Serious: Yes (Hospitalization)
  Sender: FDA-Public Use
  Company Number: FR-AMNEAL PHARMACEUTICALS-2019AMN00712

PATIENT
  Age: 77 Year
  Sex: Female

DRUGS (5)
  1. ACYCLOVIR. [Suspect]
     Active Substance: ACYCLOVIR
     Indication: ENCEPHALITIS
     Dosage: 10 MG/KG/8 H (750 MG/8 H),
     Route: 065
  2. AMOXICILLIN. [Concomitant]
     Active Substance: AMOXICILLIN
     Indication: PRODUCT USED FOR UNKNOWN INDICATION
     Dosage: 12 G PER DAY
  3. GENTAMYCIN [Concomitant]
     Active Substance: GENTAMICIN
     Indication: PRODUCT USED FOR UNKNOWN INDICATION
     Dosage: 240 MG
  4. ACYCLOVIR. [Suspect]
     Active Substance: ACYCLOVIR
     Dosage: 750 MG/8 H
     Route: 065
     Dates: end: 20180525
  5. ACYCLOVIR. [Suspect]
     Active Substance: ACYCLOVIR
     Dosage: 15 MG/KG/8 H (THAT IS, 1.2 G/8 H DILUTED IN 250 ML OF SERUM SALINE (4.8 MG/ML OF ACYCLOVIR)
     Route: 065

REACTIONS (1)
  - Acute kidney injury [Recovered/Resolved]
